FAERS Safety Report 23842626 (Version 4)
Quarter: 2024Q2

REPORT INFORMATION
  Report Type: Spontaneous
  Country: US (occurrence: US)
  Receive Date: 20240510
  Receipt Date: 20240621
  Transmission Date: 20240716
  Serious: Yes (Hospitalization, Other)
  Sender: FDA-Public Use
  Company Number: US-FARMAPROD-202405-1666

PATIENT
  Age: 65 Year
  Sex: Male

DRUGS (2)
  1. OXERVATE [Suspect]
     Active Substance: CENEGERMIN-BKBJ
     Indication: Neurotrophic keratopathy
     Route: 047
     Dates: start: 20240401
  2. OXERVATE [Suspect]
     Active Substance: CENEGERMIN-BKBJ
     Indication: Ulcerative keratitis

REACTIONS (2)
  - Hip fracture [Recovering/Resolving]
  - Urosepsis [Recovering/Resolving]

NARRATIVE: CASE EVENT DATE: 20240522
